FAERS Safety Report 4548331-9 (Version None)
Quarter: 2005Q1

REPORT INFORMATION
  Report Type: 
  Country: None (occurrence: None)
  Receive Date: 20050106
  Receipt Date: 20050106
  Transmission Date: 20050727
  Serious: Yes (Death)
  Sender: FDA-Public Use
  Company Number: None

PATIENT
  Sex: Male

DRUGS (1)
  1. PACERONE [Suspect]

REACTIONS (8)
  - ABASIA [None]
  - DIFFICULT TO WEAN FROM VENTILATOR [None]
  - DYSPHAGIA [None]
  - PNEUMONIA [None]
  - PULMONARY FIBROSIS [None]
  - SPEECH DISORDER [None]
  - VISUAL DISTURBANCE [None]
  - WEIGHT DECREASED [None]
